FAERS Safety Report 7645486-4 (Version None)
Quarter: 2011Q3

REPORT INFORMATION
  Report Type: 
  Country: None (occurrence: None)
  Receive Date: 20110729
  Receipt Date: 20110722
  Transmission Date: 20111222
  Serious: Yes (Death)
  Sender: FDA-Public Use
  Company Number: RS-UCBSA-019869

PATIENT
  Sex: Male
  Weight: 56 kg

DRUGS (16)
  1. CERTOLIZUMAB PEGOL [Suspect]
     Indication: RHEUMATOID ARTHRITIS
     Dosage: CDP870-50: 400 MG FROM 26 DEC 2005 TO 12 JUN 2006; CDP870-51 400 MG FROM 12 JUN 2006 TO 26 NOV 2007
     Route: 058
     Dates: start: 20071210, end: 20100913
  2. ASPIRIN [Concomitant]
     Indication: MYOCARDIAL INFARCTION
     Route: 048
     Dates: start: 20090914, end: 20101005
  3. METOPROLOL TARTRATE [Concomitant]
     Indication: MYOCARDIAL INFARCTION
     Route: 048
     Dates: start: 20090914, end: 20101005
  4. WARFARIN SODIUM [Concomitant]
     Indication: THROMBOSIS PROPHYLAXIS
     Dosage: 1/DAY , 3 DAYS; 2.5 MG
     Route: 048
     Dates: start: 20040301, end: 20090913
  5. CLOPIDOGREL [Concomitant]
     Indication: MYOCARDIAL INFARCTION
     Dosage: 75 MG
     Route: 048
     Dates: start: 20090914, end: 20101005
  6. METHOTREXATE [Concomitant]
     Indication: RHEUMATOID ARTHRITIS
     Route: 048
     Dates: start: 20041229
  7. RANITIDINE [Concomitant]
     Indication: PROPHYLAXIS AGAINST GASTROINTESTINAL ULCER
     Route: 048
     Dates: start: 20050603
  8. MOLSIDOMINE [Concomitant]
     Indication: MYOCARDIAL INFARCTION
     Route: 048
     Dates: start: 20090914, end: 20101005
  9. SPIRONOLACTONE [Concomitant]
     Indication: CARDIAC FAILURE CONGESTIVE
     Route: 048
     Dates: start: 20100607, end: 20101005
  10. ISOSORBIDE MONONITRATE [Concomitant]
     Indication: MYOCARDIAL INFARCTION
     Route: 048
     Dates: start: 20090914, end: 20101005
  11. ATORVASTATIN [Concomitant]
     Indication: HYPERCHOLESTEROLAEMIA
     Route: 048
     Dates: start: 20090914, end: 20101005
  12. WARFARIN SODIUM [Concomitant]
     Route: 048
     Dates: start: 20090914, end: 20101005
  13. WARFARIN SODIUM [Concomitant]
     Route: 048
     Dates: start: 20090914, end: 20101005
  14. ACETAMINOPHEN [Concomitant]
     Indication: RHEUMATOID ARTHRITIS
     Route: 048
     Dates: start: 20051227
  15. WARFARIN SODIUM [Concomitant]
     Indication: MYOCARDIAL INFARCTION
     Dosage: 1/DAY , 3 DAYS; 2.5 MG
     Route: 048
     Dates: start: 20040301, end: 20090913
  16. FUROSEMIDE [Concomitant]
     Indication: CARDIAC FAILURE CONGESTIVE
     Route: 048
     Dates: start: 20100607, end: 20101005

REACTIONS (1)
  - CEREBROVASCULAR ACCIDENT [None]
